FAERS Safety Report 9822401 (Version 2)
Quarter: 2014Q1

REPORT INFORMATION
  Report Type: Spontaneous
  Country: FR (occurrence: FR)
  Receive Date: 20140116
  Receipt Date: 20140116
  Transmission Date: 20141002
  Serious: Yes (Other)
  Sender: FDA-Public Use
  Company Number: FR-ABBVIE-13P-056-1172898-00

PATIENT
  Age: 65 Year
  Sex: Female

DRUGS (2)
  1. HUMIRA [Suspect]
     Indication: ANKYLOSING SPONDYLITIS
     Route: 058
     Dates: start: 20131025, end: 20131025
  2. EFFERALGAN [Concomitant]
     Indication: PAIN

REACTIONS (8)
  - Toxic skin eruption [Unknown]
  - Dermatitis allergic [Unknown]
  - Fatigue [Unknown]
  - Unevaluable event [Unknown]
  - Pruritus [Unknown]
  - Pyrexia [Unknown]
  - Local reaction [Unknown]
  - Pyrexia [Unknown]
